FAERS Safety Report 5852535-2 (Version None)
Quarter: 2008Q3

REPORT INFORMATION
  Report Type: 
  Country: None (occurrence: None)
  Receive Date: 20080820
  Receipt Date: 20080820
  Transmission Date: 20090109
  Serious: No
  Sender: FDA-Public Use
  Company Number: None

PATIENT
  Age: 27 Year
  Sex: Female
  Weight: 53.978 kg

DRUGS (2)
  1. MUCINEX DM [Suspect]
     Indication: EAR DISCOMFORT
     Dates: start: 20080816, end: 20080819
  2. MUCINEX DM [Suspect]
     Indication: SINUS CONGESTION
     Dates: start: 20080816, end: 20080819

REACTIONS (3)
  - CHEST DISCOMFORT [None]
  - NAUSEA [None]
  - STOMACH DISCOMFORT [None]
